FAERS Safety Report 10065552 (Version 1)
Quarter: 2014Q2

REPORT INFORMATION
  Report Type: Spontaneous
  Country: US (occurrence: US)
  Receive Date: 20140408
  Receipt Date: 20140408
  Transmission Date: 20141212
  Serious: No
  Sender: FDA-Public Use
  Company Number: US-BAYER-2014-046313

PATIENT
  Age: 79 Year
  Sex: Female
  Weight: 59.86 kg

DRUGS (2)
  1. ALEVE CAPLET [Suspect]
     Indication: ARTHRITIS
     Dosage: 1-2 DF, BID
     Route: 048
  2. XANAX [Concomitant]

REACTIONS (3)
  - Drug ineffective [None]
  - Incorrect drug administration duration [None]
  - Fatigue [Recovered/Resolved]
